FAERS Safety Report 15152740 (Version 1)
Quarter: 2018Q4

REPORT INFORMATION
  Report Type: Other
  Country: RU (occurrence: RU)
  Receive Date: 20180717
  Receipt Date: 20180717
  Transmission Date: 20190204
  Serious: No
  Sender: FDA-Public Use
  Company Number: RU-LUPIN PHARMACEUTICALS INC.-2018-03692

PATIENT
  Age: 79 Year
  Sex: Male
  Weight: 43 kg

DRUGS (15)
  1. ACIPOL [Concomitant]
     Indication: DIARRHOEA
     Dosage: UNK
     Route: 048
     Dates: start: 20120627, end: 20120707
  2. STEROFUNDIN ISOTONIC [Concomitant]
     Indication: POISONING
     Dosage: UNK
     Dates: start: 20120605, end: 20120614
  3. PYRIDOXINE HYDROCHLORIDE. [Concomitant]
     Active Substance: PYRIDOXINE HYDROCHLORIDE
     Indication: PROPHYLAXIS
     Dosage: UNK
     Route: 065
     Dates: start: 20120530
  4. LINEX [Concomitant]
     Active Substance: LACTOBACILLUS ACIDOPHILUS
     Indication: DIARRHOEA
     Dosage: UNK
     Route: 048
     Dates: start: 20120605, end: 20120627
  5. ENALAPRIL [Concomitant]
     Active Substance: ENALAPRIL
     Indication: HYPERTENSION
     Dosage: UNK
     Route: 048
     Dates: start: 20120517
  6. RIFABUTIN. [Suspect]
     Active Substance: RIFABUTIN
     Indication: PULMONARY TUBERCULOSIS
     Dosage: 0.15 G, BID
     Route: 048
     Dates: start: 20120530, end: 20120725
  7. PYRAZINAMIDE. [Suspect]
     Active Substance: PYRAZINAMIDE
     Indication: PULMONARY TUBERCULOSIS
     Dosage: 0.5 G, TID
     Route: 048
     Dates: start: 20120530, end: 20120725
  8. OMEPRAZOLE. [Concomitant]
     Active Substance: OMEPRAZOLE
     Indication: ANTIVIRAL PROPHYLAXIS
     Route: 048
  9. CARSIL [Concomitant]
     Active Substance: DIETARY SUPPLEMENT\HERBALS\MILK THISTLE
     Indication: ANTIVIRAL PROPHYLAXIS
     Dosage: UNK
     Route: 048
     Dates: start: 20120720, end: 20120725
  10. EUPHYLLIN                          /00003701/ [Concomitant]
     Indication: BRONCHIAL OBSTRUCTION
     Dosage: UNK
     Route: 042
     Dates: start: 20120530, end: 20120603
  11. SODIUM CHLORIDE. [Concomitant]
     Active Substance: SODIUM CHLORIDE
     Indication: ANTIBIOTIC THERAPY
     Dosage: UNK
     Route: 042
     Dates: start: 20120530, end: 20120603
  12. TARICIN [Suspect]
     Active Substance: OFLOXACIN
     Indication: PULMONARY TUBERCULOSIS
     Dosage: 0.2 G, TID
     Route: 048
     Dates: start: 20120530, end: 20120725
  13. THIAMINE BROMIDE [Concomitant]
     Indication: PROPHYLAXIS
     Dosage: UNK
     Route: 065
     Dates: start: 20120530
  14. STERICEF [Concomitant]
     Indication: PULMONARY TUBERCULOSIS
     Dosage: UNK
     Route: 030
     Dates: start: 20120530, end: 20120605
  15. GLUCOSE [Concomitant]
     Active Substance: DEXTROSE
     Indication: DETOXIFICATION
     Dosage: UNK
     Route: 042

REACTIONS (3)
  - Appetite disorder [Not Recovered/Not Resolved]
  - Alanine aminotransferase increased [Not Recovered/Not Resolved]
  - Abdominal pain upper [Not Recovered/Not Resolved]

NARRATIVE: CASE EVENT DATE: 20120724
